FAERS Safety Report 15848279 (Version 1)
Quarter: 2019Q1

REPORT INFORMATION
  Report Type: Spontaneous
  Country: US (occurrence: US)
  Receive Date: 20190121
  Receipt Date: 20190121
  Transmission Date: 20190417
  Serious: Yes (Other)
  Sender: FDA-Public Use
  Company Number: US-009507513-1901USA005487

PATIENT

DRUGS (2)
  1. NIACIN. [Suspect]
     Active Substance: NIACIN
     Dosage: UNK
     Dates: start: 2015
  2. ZETIA [Suspect]
     Active Substance: EZETIMIBE
     Dosage: UNK
     Route: 048
     Dates: start: 2015

REACTIONS (3)
  - Back pain [Unknown]
  - Diverticulitis [Unknown]
  - Adverse drug reaction [Unknown]
